FAERS Safety Report 23616959 (Version 2)
Quarter: 2024Q1

REPORT INFORMATION
  Report Type: Spontaneous
  Country: TR (occurrence: TR)
  Receive Date: 20240311
  Receipt Date: 20240319
  Transmission Date: 20240410
  Serious: No
  Sender: FDA-Public Use
  Company Number: TR-BAYER-2024A034035

PATIENT
  Age: 5 Year
  Sex: Female

DRUGS (3)
  1. EYLEA [Suspect]
     Active Substance: AFLIBERCEPT
     Indication: Eye haemorrhage
     Dosage: UNK, 40MG/ML
     Dates: start: 20240115, end: 20240115
  2. EYLEA [Suspect]
     Active Substance: AFLIBERCEPT
     Dosage: UNK, 40MG/ML
     Dates: start: 20240116, end: 20240116
  3. EYLEA [Suspect]
     Active Substance: AFLIBERCEPT
     Dosage: UNK, 40MG/ML
     Dates: start: 20240226, end: 20240226

REACTIONS (3)
  - Visual impairment [Unknown]
  - Neoplasm [Not Recovered/Not Resolved]
  - Off label use [Unknown]

NARRATIVE: CASE EVENT DATE: 20240101
